FAERS Safety Report 5071368-0 (Version None)
Quarter: 2006Q3

REPORT INFORMATION
  Report Type: 
  Country: None (occurrence: None)
  Receive Date: 20060804
  Receipt Date: 20051214
  Transmission Date: 20061208
  Serious: No
  Sender: FDA-Public Use
  Company Number: US-AMGEN-US161383

PATIENT
  Age: 66 Year
  Sex: Female

DRUGS (2)
  1. ARANESP [Suspect]
     Indication: DIALYSIS
     Route: 058
     Dates: start: 20051108
  2. FERROUS SULFATE TAB [Concomitant]
     Route: 048

REACTIONS (1)
  - HAEMOGLOBIN DECREASED [None]
